FAERS Safety Report 19604996 (Version 1)
Quarter: 2021Q3

REPORT INFORMATION
  Report Type: Report from Study
  Country: GB (occurrence: GB)
  Receive Date: 20210723
  Receipt Date: 20210723
  Transmission Date: 20211014
  Serious: Yes (Hospitalization, Other)
  Sender: FDA-Public Use
  Company Number: NVSC2021GB156757

PATIENT
  Sex: Female

DRUGS (2)
  1. DORZOLAMIDE [Concomitant]
     Active Substance: DORZOLAMIDE
     Indication: PRODUCT USED FOR UNKNOWN INDICATION
     Route: 065
  2. COSENTYX [Suspect]
     Active Substance: SECUKINUMAB
     Indication: PSORIATIC ARTHROPATHY
     Dosage: 300 MG, QMO
     Route: 058
     Dates: start: 20210609

REACTIONS (7)
  - Nephrolithiasis [Unknown]
  - Influenza [Unknown]
  - Lymphadenopathy [Unknown]
  - Iritis [Unknown]
  - Renal pain [Unknown]
  - Viral infection [Unknown]
  - Ocular discomfort [Unknown]

NARRATIVE: CASE EVENT DATE: 20210706
